FAERS Safety Report 21184312 (Version 1)
Quarter: 2022Q3

REPORT INFORMATION
  Report Type: Spontaneous
  Country: US (occurrence: US)
  Receive Date: 20220808
  Receipt Date: 20220808
  Transmission Date: 20221027
  Serious: Yes (Other)
  Sender: FDA-Public Use
  Company Number: US-AMGEN-USASP2022132265

PATIENT
  Sex: Female

DRUGS (1)
  1. PROLIA [Suspect]
     Active Substance: DENOSUMAB
     Indication: Product used for unknown indication
     Dosage: UNK
     Route: 065

REACTIONS (5)
  - Hip fracture [Recovered/Resolved]
  - Neoplasm malignant [Recovered/Resolved]
  - Fall [Recovered/Resolved]
  - Nervousness [Not Recovered/Not Resolved]
  - Tooth infection [Not Recovered/Not Resolved]
